FAERS Safety Report 9063042 (Version 1)
Quarter: 2013Q1

REPORT INFORMATION
  Report Type: Report from Study
  Country: US (occurrence: US)
  Receive Date: 20130131
  Receipt Date: 20130131
  Transmission Date: 20140127
  Serious: No
  Sender: FDA-Public Use
  Company Number: US-ABBOTT-12P-163-1013520-00

PATIENT
  Age: 64 Year
  Sex: Female

DRUGS (13)
  1. HUMIRA [Suspect]
     Dates: start: 20121020
  2. METHOTREXATE [Concomitant]
     Indication: RHEUMATOID ARTHRITIS
     Dosage: 4 TABLETS WEEKLY
     Route: 048
  3. FOLIC ACID [Concomitant]
     Indication: VITAMIN SUPPLEMENTATION
     Route: 048
  4. LEUCOVORIN CALCIUM [Concomitant]
     Indication: RHEUMATOID ARTHRITIS
     Dosage: 5MG WEEKLY
     Route: 048
  5. LABETALOL [Concomitant]
     Indication: BLOOD PRESSURE
     Route: 048
  6. LISINOPRIL [Concomitant]
     Indication: BLOOD PRESSURE
     Route: 048
  7. ZOCOR [Concomitant]
     Indication: BLOOD CHOLESTEROL
     Route: 048
  8. LUTEIN [Concomitant]
     Indication: EYE DISORDER
     Route: 048
  9. B-COMPLEX [Concomitant]
     Indication: PRODUCT USED FOR UNKNOWN INDICATION
     Route: 048
  10. CALCIUM PLUS VITAMIN D [Concomitant]
     Indication: PRODUCT USED FOR UNKNOWN INDICATION
     Route: 048
  11. MVI ONE A DAY [Concomitant]
     Indication: PRODUCT USED FOR UNKNOWN INDICATION
  12. FISH OIL [Concomitant]
     Indication: INFLAMMATION
     Route: 048
  13. MAGNESIUM [Concomitant]
     Indication: PRODUCT USED FOR UNKNOWN INDICATION

REACTIONS (1)
  - Nasal congestion [Recovering/Resolving]
